FAERS Safety Report 6719489-8 (Version None)
Quarter: 2010Q2

REPORT INFORMATION
  Report Type: 
  Country: None (occurrence: None)
  Receive Date: 20100511
  Receipt Date: 20100428
  Transmission Date: 20101027
  Serious: Yes (Death, Hospitalization)
  Sender: FDA-Public Use
  Company Number: US-ROCHE-698246

PATIENT
  Sex: Female

DRUGS (1)
  1. MYCOPHENOLATE MOFETIL [Suspect]
     Indication: MYASTHENIA GRAVIS
     Route: 048
     Dates: start: 20050101, end: 20100409

REACTIONS (4)
  - DEATH [None]
  - MYASTHENIA GRAVIS [None]
  - MYOCARDIAL INFARCTION [None]
  - WRONG TECHNIQUE IN DRUG USAGE PROCESS [None]
